FAERS Safety Report 11983537 (Version 39)
Quarter: 2019Q1

REPORT INFORMATION
  Report Type: Spontaneous
  Country: US (occurrence: US)
  Receive Date: 20160201
  Receipt Date: 20190130
  Transmission Date: 20190417
  Serious: Yes (Death, Hospitalization, Other)
  Sender: FDA-Public Use
  Company Number: US-ACTELION PHARMACEUTICALS US, INC.-A-US2016-130726

PATIENT
  Age: 68 Year
  Sex: Female
  Weight: 52.15 kg

DRUGS (15)
  1. TRACLEER [Suspect]
     Active Substance: BOSENTAN
     Indication: PULMONARY ARTERIAL HYPERTENSION
     Dosage: 125 MG, BID
     Route: 048
     Dates: start: 20060922
  2. REMODULIN [Suspect]
     Active Substance: TREPROSTINIL
     Dosage: 46 NG/KG, PER MIN
     Route: 042
  3. TYVASO [Concomitant]
     Active Substance: TREPROSTINIL
     Dosage: 1 BREATH, QID
  4. OXYGEN. [Concomitant]
     Active Substance: OXYGEN
     Dosage: 1.5 L, UNK
  5. TRACLEER [Suspect]
     Active Substance: BOSENTAN
     Dosage: 125 MG, BID
     Route: 048
  6. ADCIRCA [Concomitant]
     Active Substance: TADALAFIL
  7. FLOLAN [Concomitant]
     Active Substance: EPOPROSTENOL SODIUM
     Dosage: UNK
  8. DILTIAZEM. [Concomitant]
     Active Substance: DILTIAZEM
  9. CEFTIN [Suspect]
     Active Substance: CEFUROXIME AXETIL
     Indication: BRONCHITIS
     Route: 065
  10. SILDENAFIL. [Concomitant]
     Active Substance: SILDENAFIL
  11. LASIX [Concomitant]
     Active Substance: FUROSEMIDE
     Indication: DYSPNOEA
  12. REMODULIN [Suspect]
     Active Substance: TREPROSTINIL
     Dosage: 43 NG/KG, PER MIN
     Route: 042
  13. DULERA [Concomitant]
     Active Substance: FORMOTEROL FUMARATE DIHYDRATE\MOMETASONE FUROATE
  14. SPIRIVA [Concomitant]
     Active Substance: TIOTROPIUM BROMIDE MONOHYDRATE
  15. REMODULIN [Suspect]
     Active Substance: TREPROSTINIL
     Indication: PRODUCT USED FOR UNKNOWN INDICATION
     Dosage: UNK
     Route: 065

REACTIONS (74)
  - Tachycardia [Unknown]
  - Bronchitis [Unknown]
  - Palpitations [Not Recovered/Not Resolved]
  - Unevaluable event [Unknown]
  - Dry throat [Unknown]
  - Retching [Unknown]
  - Feeling abnormal [Unknown]
  - Therapy change [Unknown]
  - Respiratory syncytial virus infection [Unknown]
  - Respiratory distress [Unknown]
  - Paraesthesia [Unknown]
  - Nasal congestion [Unknown]
  - Pain in extremity [Unknown]
  - Infusion site pruritus [Unknown]
  - Abnormal dreams [Unknown]
  - Swelling [Unknown]
  - Pneumonia [Unknown]
  - Pyrexia [Unknown]
  - Obstructive airways disorder [Unknown]
  - Migraine with aura [Unknown]
  - Oedema peripheral [Unknown]
  - Cardiac disorder [Fatal]
  - Pericardial effusion [Unknown]
  - Chest pain [Unknown]
  - Lung infection [Unknown]
  - Dyspnoea [Unknown]
  - Heart rate increased [Not Recovered/Not Resolved]
  - Nasopharyngitis [Unknown]
  - Influenza [Unknown]
  - Headache [Unknown]
  - Blood pressure decreased [Unknown]
  - Insomnia [Unknown]
  - Constipation [Unknown]
  - Fall [Unknown]
  - Head injury [Unknown]
  - Abdominal distension [Unknown]
  - Vulvovaginal swelling [Unknown]
  - Sepsis [Unknown]
  - Subglottic laryngitis [Unknown]
  - Malaise [Unknown]
  - Visual impairment [Unknown]
  - Feeling hot [Unknown]
  - Throat tightness [Unknown]
  - Nausea [Unknown]
  - Migraine [Unknown]
  - Dizziness [Unknown]
  - Catheter site swelling [Unknown]
  - Device occlusion [Unknown]
  - Cardiomegaly [Unknown]
  - Hallucination [Unknown]
  - Skin tightness [Unknown]
  - Hypoaesthesia [Unknown]
  - Musculoskeletal chest pain [Unknown]
  - Diarrhoea [Unknown]
  - Therapy non-responder [Unknown]
  - Gastric disorder [Unknown]
  - Wheezing [Unknown]
  - Abdominal pain upper [Unknown]
  - Abdominal discomfort [Not Recovered/Not Resolved]
  - Cough [Unknown]
  - Haemoptysis [Unknown]
  - Atrial fibrillation [Unknown]
  - Hyperchlorhydria [Not Recovered/Not Resolved]
  - Catheter site pain [Unknown]
  - Catheter site erythema [Unknown]
  - Hospitalisation [Unknown]
  - Respiratory failure [Unknown]
  - Oxygen saturation decreased [Unknown]
  - Respiratory tract infection [Unknown]
  - Condition aggravated [Unknown]
  - Fatigue [Unknown]
  - Peripheral swelling [Unknown]
  - Erythema [Unknown]
  - Dysuria [Unknown]

NARRATIVE: CASE EVENT DATE: 20160123
